FAERS Safety Report 9237129 (Version 2)
Quarter: 2014Q2

REPORT INFORMATION
  Report Type: Spontaneous
  Country: US (occurrence: US)
  Receive Date: 20130417
  Receipt Date: 20140404
  Transmission Date: 20141212
  Serious: Yes (Hospitalization, Disabling, Other)
  Sender: FDA-Public Use
  Company Number: US-GLAXOSMITHKLINE-A1019624A

PATIENT
  Age: 61 Year
  Sex: Male

DRUGS (15)
  1. VOTRIENT [Suspect]
     Indication: RENAL CANCER
     Dosage: 600MG PER DAY
     Route: 048
     Dates: start: 20121003
  2. OXYCODONE [Concomitant]
  3. VENLAFAXINE [Concomitant]
  4. LORAZEPAM [Concomitant]
  5. CHLORAZEPAM [Concomitant]
  6. ONDANSETRON [Concomitant]
  7. DIAZEPAM [Concomitant]
  8. METOPROLOL [Concomitant]
  9. LEVOTHYROXINE [Concomitant]
  10. BACLOFEN [Concomitant]
  11. CLONAZEPAM [Concomitant]
  12. AMLODIPINE [Concomitant]
  13. MAG CITRATE [Concomitant]
  14. SIMETHICONE [Concomitant]
  15. ATORVASTATIN [Concomitant]

REACTIONS (10)
  - Blood uric acid increased [Not Recovered/Not Resolved]
  - Pain in extremity [Not Recovered/Not Resolved]
  - Neuralgia [Not Recovered/Not Resolved]
  - Erythema [Not Recovered/Not Resolved]
  - Skin exfoliation [Recovering/Resolving]
  - Dry skin [Recovering/Resolving]
  - Nausea [Recovering/Resolving]
  - Arthralgia [Not Recovered/Not Resolved]
  - Investigation [Unknown]
  - Echocardiogram abnormal [Unknown]
